FAERS Safety Report 8943479 (Version 2)
Quarter: 2013Q3

REPORT INFORMATION
  Report Type: Spontaneous
  Country: US (occurrence: US)
  Receive Date: 20121204
  Receipt Date: 20130830
  Transmission Date: 20140515
  Serious: No
  Sender: FDA-Public Use
  Company Number: US-PFIZER INC-2012299474

PATIENT
  Age: 54 Year
  Sex: Female
  Weight: 81.63 kg

DRUGS (7)
  1. DETROL LA [Suspect]
     Indication: POLLAKIURIA
     Dosage: 4 MG, 2X/DAY
     Route: 048
  2. DETROL LA [Suspect]
     Dosage: 4 MG, 1X/DAY
  3. DETROL LA [Suspect]
     Dosage: 4 MG, 2X/DAY
     Route: 048
     Dates: start: 2004
  4. DETROL LA [Suspect]
     Dosage: 2 MG, 4X/DAY
     Route: 048
  5. BETASERON [Concomitant]
     Indication: MULTIPLE SCLEROSIS
     Dosage: 0.3 MG, ALTERNATE DAY
  6. LISINOPRIL [Concomitant]
     Indication: HYPERTENSION
     Dosage: 12.5 MG, DAILY
  7. AMANTADINE [Concomitant]
     Indication: FATIGUE
     Dosage: 100 MG, 2X/DAY

REACTIONS (3)
  - Off label use [Unknown]
  - Dry mouth [Recovered/Resolved]
  - Mucosal dryness [Not Recovered/Not Resolved]
